FAERS Safety Report 25301897 (Version 1)
Quarter: 2025Q2

REPORT INFORMATION
  Report Type: Spontaneous
  Country: US (occurrence: US)
  Receive Date: 20250512
  Receipt Date: 20250512
  Transmission Date: 20250717
  Serious: No
  Sender: ABBVIE
  Company Number: US-ABBVIE-6268756

PATIENT
  Sex: Female

DRUGS (1)
  1. QULIPTA [Suspect]
     Active Substance: ATOGEPANT
     Indication: Migraine
     Dosage: UNKNOWN
     Route: 048

REACTIONS (6)
  - Tunnel vision [Unknown]
  - Nausea [Unknown]
  - Tachycardia [Unknown]
  - Migraine [Unknown]
  - Gait inability [Unknown]
  - Fatigue [Unknown]
